FAERS Safety Report 21911633 (Version 1)
Quarter: 2023Q1

REPORT INFORMATION
  Report Type: Spontaneous
  Country: US (occurrence: US)
  Receive Date: 20230125
  Receipt Date: 20230125
  Transmission Date: 20230417
  Serious: No
  Sender: FDA-Public Use
  Company Number: TU22-1149072

PATIENT
  Age: 65 Year
  Sex: Female
  Weight: 43.091 kg

DRUGS (3)
  1. BOTOX COSMETIC [Suspect]
     Active Substance: ONABOTULINUMTOXINA
     Indication: Skin wrinkling
     Dosage: 30 UNITS, SINGLE
     Route: 030
     Dates: start: 2012, end: 2012
  2. BOTOX COSMETIC [Suspect]
     Active Substance: ONABOTULINUMTOXINA
     Indication: Skin wrinkling
     Dosage: 15 UNITS, SINGLE
     Route: 030
     Dates: start: 2012, end: 2012
  3. BOTOX COSMETIC [Suspect]
     Active Substance: ONABOTULINUMTOXINA
     Indication: Skin wrinkling
     Dosage: 15 UNITS, SINGLE
     Route: 030
     Dates: start: 2012, end: 2012

REACTIONS (5)
  - Off label use [Unknown]
  - Product storage error [Unknown]
  - Multiple use of single-use product [Unknown]
  - Drug ineffective [Unknown]
  - Therapeutic product effect incomplete [Unknown]

NARRATIVE: CASE EVENT DATE: 20220528
